FAERS Safety Report 5449902-8 (Version None)
Quarter: 2007Q3

REPORT INFORMATION
  Report Type: 
  Country: None (occurrence: None)
  Receive Date: 20070910
  Receipt Date: 20070910
  Transmission Date: 20080115
  Serious: Yes (Hospitalization)
  Sender: FDA-Public Use
  Company Number: None

PATIENT
  Sex: Female
  Weight: 59.4 kg

DRUGS (10)
  1. CYCLOPHOSPHAMIDE [Suspect]
     Dosage: 1002 MG
  2. PREDNISONE [Suspect]
     Dosage: 350 MG
  3. BENADRYL [Concomitant]
  4. COLACE [Concomitant]
  5. COREG [Concomitant]
  6. IMODIUM [Concomitant]
  7. LORTAB [Concomitant]
  8. NEURONTIN [Concomitant]
  9. PREVACID [Concomitant]
  10. SPIRIVA [Concomitant]

REACTIONS (2)
  - DIARRHOEA HAEMORRHAGIC [None]
  - LOWER GASTROINTESTINAL HAEMORRHAGE [None]
